FAERS Safety Report 8193919-X (Version None)
Quarter: 2012Q1

REPORT INFORMATION
  Report Type: 
  Country: None (occurrence: None)
  Receive Date: 20120308
  Receipt Date: 20120302
  Transmission Date: 20120608
  Serious: Yes (Other)
  Sender: FDA-Public Use
  Company Number: US-ELI_LILLY_AND_COMPANY-US201203000923

PATIENT
  Sex: Male

DRUGS (1)
  1. ALIMTA [Suspect]
     Dosage: 950 MG, UNK
     Dates: start: 20111212

REACTIONS (2)
  - TOXICITY TO VARIOUS AGENTS [None]
  - FATIGUE [None]
